FAERS Safety Report 6035130-4 (Version None)
Quarter: 2009Q1

REPORT INFORMATION
  Report Type: 
  Country: None (occurrence: None)
  Receive Date: 20090112
  Receipt Date: 20090105
  Transmission Date: 20090719
  Serious: No
  Sender: FDA-Public Use
  Company Number: US-B.I. PHARMACEUTICALS,INC./RIDGEFIELD-2009-BP-00158BP

PATIENT
  Age: 69 Year
  Sex: Male

DRUGS (3)
  1. SPIRIVA [Suspect]
     Indication: LUNG DISORDER
     Dosage: 18MCG
     Route: 055
     Dates: start: 20090105
  2. SPIRIVA [Suspect]
     Dosage: 18MCG
     Route: 055
     Dates: start: 20080701, end: 20081001
  3. OXYGEN [Concomitant]
     Indication: LUNG DISORDER

REACTIONS (3)
  - CATARACT [None]
  - EYE IRRITATION [None]
  - VISION BLURRED [None]
